FAERS Safety Report 15280727 (Version 1)
Quarter: 2018Q3

REPORT INFORMATION
  Report Type: Spontaneous
  Country: DE (occurrence: DE)
  Receive Date: 20180815
  Receipt Date: 20180815
  Transmission Date: 20181010
  Serious: Yes (Death, Hospitalization)
  Sender: FDA-Public Use
  Company Number: PHHY2018DE067783

PATIENT
  Age: 84 Year
  Sex: Male
  Weight: 53 kg

DRUGS (15)
  1. BISOPROLOL [Concomitant]
     Active Substance: BISOPROLOL
     Indication: HYPERTENSION
     Dosage: 5 MG, UNK
     Route: 048
     Dates: start: 20180503
  2. KALINOR [Concomitant]
     Indication: PROPHYLAXIS
     Dosage: 3 OT, UNK
     Route: 048
     Dates: start: 20180530
  3. FOLSAN [Concomitant]
     Active Substance: FOLIC ACID
     Indication: PROPHYLAXIS
     Dosage: 5 MG, UNK
     Route: 048
  4. CARBOPLATIN. [Suspect]
     Active Substance: CARBOPLATIN
     Indication: NON-SMALL CELL LUNG CANCER
     Dosage: 1.25 MG*MIN/ML
     Route: 041
  5. ASA [Concomitant]
     Active Substance: ASPIRIN
     Indication: PROPHYLAXIS
     Dosage: 100 MG, UNK
     Route: 048
  6. FERRO SANOL [Concomitant]
     Active Substance: FERROUS GLYCINE SULFATE
     Indication: PROPHYLAXIS
     Dosage: 80 MG, UNK
     Route: 048
  7. MAGNESIUM VERLA [Concomitant]
     Active Substance: MAGNESIUM
     Indication: PROPHYLAXIS
     Dosage: 2 OT, UNK
     Route: 048
  8. SIMVASTATIN. [Concomitant]
     Active Substance: SIMVASTATIN
     Indication: HYPERTENSION
     Dosage: 40 MG, UNK
     Route: 048
  9. FORADIL [Concomitant]
     Active Substance: FORMOTEROL FUMARATE
     Indication: CHRONIC OBSTRUCTIVE PULMONARY DISEASE
     Dosage: 24 UG, UNK
     Route: 048
  10. FILGRASTINE [Concomitant]
     Active Substance: FILGRASTIM
     Indication: PROPHYLAXIS
     Dosage: 30 UG, UNK
     Route: 058
  11. TORASEMID [Concomitant]
     Active Substance: TORSEMIDE
     Indication: HYPERTENSION
     Dosage: 5 MG, UNK
     Route: 048
  12. ARANESP [Concomitant]
     Active Substance: DARBEPOETIN ALFA
     Indication: PROPHYLAXIS
     Dosage: 500 UG, UNK
     Route: 058
     Dates: start: 20180515, end: 20180515
  13. ABRAXANE [Suspect]
     Active Substance: PACLITAXEL
     Indication: NON-SMALL CELL LUNG CANCER
     Dosage: 50 MG/M2, UNK
     Route: 041
  14. ABRAXANE [Suspect]
     Active Substance: PACLITAXEL
     Dosage: 50 MG/M2, UNK
     Route: 041
  15. DECORTIN [Concomitant]
     Active Substance: PREDNISONE
     Indication: PROPHYLAXIS
     Dosage: 10 MG, UNK
     Route: 048
     Dates: start: 20180424

REACTIONS (2)
  - Non-small cell lung cancer [Fatal]
  - Pyrexia [Unknown]

NARRATIVE: CASE EVENT DATE: 20180601
